FAERS Safety Report 5764085-2 (Version None)
Quarter: 2008Q2

REPORT INFORMATION
  Report Type: 
  Country: None (occurrence: None)
  Receive Date: 20080609
  Receipt Date: 20080403
  Transmission Date: 20081010
  Serious: No
  Sender: FDA-Public Use
  Company Number: 002#2#2008-00218

PATIENT
  Age: 93 Year
  Sex: Female
  Weight: 54.4316 kg

DRUGS (6)
  1. NEUPRO [Suspect]
     Indication: PARKINSON'S DISEASE
     Dosage: SEE IMAGE
     Route: 062
     Dates: start: 20071001, end: 20071001
  2. NEUPRO [Suspect]
     Indication: PARKINSON'S DISEASE
     Dosage: SEE IMAGE
     Route: 062
     Dates: start: 20071001, end: 20080306
  3. NEUPRO [Suspect]
     Indication: PARKINSON'S DISEASE
     Dosage: SEE IMAGE
     Route: 062
     Dates: start: 20080307, end: 20080324
  4. NEUPRO [Suspect]
     Indication: PARKINSON'S DISEASE
     Dosage: SEE IMAGE
     Route: 062
     Dates: start: 20080325
  5. SINEMET [Concomitant]
  6. VITAMIN TAB [Concomitant]

REACTIONS (3)
  - BLOOD PRESSURE FLUCTUATION [None]
  - DRUG INEFFECTIVE [None]
  - GENERAL PHYSICAL HEALTH DETERIORATION [None]
